FAERS Safety Report 12411857 (Version 1)
Quarter: 2016Q2

REPORT INFORMATION
  Report Type: Spontaneous
  Country: FR (occurrence: FR)
  Receive Date: 20160527
  Receipt Date: 20160527
  Transmission Date: 20160815
  Serious: Yes (Life-Threatening, Hospitalization)
  Sender: FDA-Public Use
  Company Number: FR-009507513-1605FRA013014

PATIENT
  Age: 18 Year
  Sex: Female

DRUGS (5)
  1. ALPRAZOLAM. [Suspect]
     Active Substance: ALPRAZOLAM
     Indication: POISONING
     Dosage: ASSUMED INGESTION OF 15 TABLETS OF 7.5 MG (ONE INTAKE)
     Route: 048
     Dates: start: 20160418, end: 20160418
  2. PROPRANOLOL HYDROCHLORIDE. [Suspect]
     Active Substance: PROPRANOLOL HYDROCHLORIDE
     Indication: POISONING
     Dosage: ASSUMED INGESTION OF 30 SUSTAINED RELEASED OSMOTIC TABLETS OF 160 MG (ONE INTAKE)
     Route: 048
     Dates: start: 20160418, end: 20160418
  3. RENITEC [Suspect]
     Active Substance: ENALAPRIL MALEATE
     Indication: POISONING
     Dosage: ASSUMED INGESTION OF 14 TABLETS OF 5 MG (ONE INTAKE)
     Route: 048
     Dates: start: 20160418, end: 20160418
  4. JANUVIA [Suspect]
     Active Substance: SITAGLIPTIN PHOSPHATE
     Indication: POISONING
     Dosage: ASSUMED INGESTION OF 14 TABLETS OF 100 MG (ONE INTAKE)
     Route: 048
     Dates: start: 20160418, end: 20160418
  5. ALPRESS LP [Suspect]
     Active Substance: PRAZOSIN HYDROCHLORIDE
     Indication: POISONING
     Dosage: ASSUMED INGESTION OF 30 TABLETS OF 150 MG (ONE INTAKE)
     Route: 048
     Dates: start: 20160418, end: 20160418

REACTIONS (4)
  - Shock [Recovered/Resolved]
  - Cardiogenic shock [Recovered/Resolved]
  - Atrioventricular block first degree [Recovered/Resolved]
  - Somnolence [Recovered/Resolved]

NARRATIVE: CASE EVENT DATE: 20160419
